FAERS Safety Report 12887097 (Version 2)
Quarter: 2016Q4

REPORT INFORMATION
  Report Type: Spontaneous
  Country: CA (occurrence: CA)
  Receive Date: 20161026
  Receipt Date: 20161123
  Transmission Date: 20170207
  Serious: Yes (Hospitalization, Other)
  Sender: FDA-Public Use
  Company Number: CA-GLAXOSMITHKLINE-CA2016GSK154053

PATIENT
  Sex: Female

DRUGS (2)
  1. VENTOLIN [Suspect]
     Active Substance: ALBUTEROL SULFATE
     Indication: PRODUCT USED FOR UNKNOWN INDICATION
     Dosage: UNK
     Dates: start: 2014
  2. PREDNISONE. [Concomitant]
     Active Substance: PREDNISONE

REACTIONS (12)
  - Dyspnoea [Unknown]
  - Swollen tongue [Unknown]
  - Gait disturbance [Unknown]
  - Malaise [Unknown]
  - General physical health deterioration [Unknown]
  - Feeling abnormal [Unknown]
  - Hospitalisation [Unknown]
  - Dysphagia [Unknown]
  - Vision blurred [Unknown]
  - Infection [Unknown]
  - Asthenia [Unknown]
  - Dizziness [Unknown]
